FAERS Safety Report 7744270-0 (Version None)
Quarter: 2011Q3

REPORT INFORMATION
  Report Type: 
  Country: None (occurrence: None)
  Receive Date: 20110912
  Receipt Date: 20110906
  Transmission Date: 20111222
  Serious: Yes (Hospitalization, Other)
  Sender: FDA-Public Use
  Company Number: FR-PFIZER INC-2011208076

PATIENT
  Age: 81 Year
  Sex: Male

DRUGS (16)
  1. ASPIRIN [Suspect]
     Dosage: 160 MG DAILY
     Route: 048
     Dates: end: 20110720
  2. PREVISCAN [Suspect]
     Dosage: UNK
     Route: 048
     Dates: start: 20110712
  3. HEPARIN SODIUM [Suspect]
     Dosage: UNK
     Route: 042
     Dates: start: 20110712, end: 20110720
  4. PREVISCAN [Suspect]
     Dosage: 1.25 DAILY
     Route: 048
     Dates: start: 20110717
  5. ALPRAZOLAM [Concomitant]
     Dosage: UNK
  6. FORLAX [Concomitant]
     Dosage: UNK
     Dates: start: 20110718
  7. PREVISCAN [Suspect]
     Dosage: 1 DAILY
     Route: 048
     Dates: start: 20110715, end: 20110716
  8. ATORVASTATIN CALCIUM [Concomitant]
     Dosage: 10 MG DAILY
     Route: 048
     Dates: end: 20110720
  9. NORFLOXACIN [Concomitant]
     Dosage: 400 MG, 2X/DAY
     Dates: start: 20110718
  10. EFFEXOR XR [Suspect]
     Dosage: 75 MG, 2X/DAY
     Route: 048
     Dates: end: 20110720
  11. PREVISCAN [Suspect]
     Dosage: 1.5 DAILY
     Route: 048
     Dates: start: 20110719, end: 20110720
  12. ZOLPIDEM [Concomitant]
     Dosage: UNK
  13. PRIMPERAN TAB [Concomitant]
     Dosage: 3 AMPOULES DAILY
     Route: 042
     Dates: start: 20110718
  14. PREVISCAN [Suspect]
     Dosage: 0.5 DAILY
     Route: 048
     Dates: start: 20110713, end: 20110714
  15. NEXIUM [Concomitant]
     Dosage: 40 MG DAILY
  16. TRAMADOL HCL [Concomitant]
     Dosage: UNK
     Dates: start: 20110718

REACTIONS (1)
  - MUSCLE HAEMORRHAGE [None]
